FAERS Safety Report 7013462-0 (Version None)
Quarter: 2010Q3

REPORT INFORMATION
  Report Type: 
  Country: None (occurrence: None)
  Receive Date: 20100924
  Receipt Date: 20100917
  Transmission Date: 20110219
  Serious: No
  Sender: FDA-Public Use
  Company Number: US-PFIZER INC-2010118931

PATIENT
  Sex: Female
  Weight: 89.796 kg

DRUGS (1)
  1. PROCARDIA [Suspect]
     Indication: HYPERTENSION
     Dosage: 60 MG, 1X/DAY
     Route: 048

REACTIONS (3)
  - DRY SKIN [None]
  - EAR PRURITUS [None]
  - SKIN DISCOLOURATION [None]
